FAERS Safety Report 14594833 (Version 1)
Quarter: 2018Q1

REPORT INFORMATION
  Report Type: Spontaneous
  Country: US (occurrence: US)
  Receive Date: 20180302
  Receipt Date: 20180302
  Transmission Date: 20180509
  Serious: No
  Sender: FDA-Public Use
  Company Number: US-AKORN PHARMACEUTICALS-2017AKN01154

PATIENT
  Sex: Female
  Weight: 61.22 kg

DRUGS (5)
  1. MAGNESIUM [Concomitant]
     Active Substance: MAGNESIUM
  2. UNSPECIFIED VITAMINS [Concomitant]
     Active Substance: VITAMINS
  3. UNSPECIFIED INHALER [Concomitant]
     Active Substance: UNSPECIFIED INGREDIENT
  4. MYORISAN [Suspect]
     Active Substance: ISOTRETINOIN
     Indication: ACNE
     Dosage: 60 MG, 1X/DAY
     Dates: start: 20170731, end: 20170817
  5. MYORISAN [Suspect]
     Active Substance: ISOTRETINOIN
     Dosage: 40 MG, AS DIRECTED (40 MG FOR 3 DAYS, 80 MG ON FOURTH DAY, REPEAT)
     Dates: start: 20170803, end: 20170918

REACTIONS (1)
  - Back pain [Recovering/Resolving]
